FAERS Safety Report 16003807 (Version 1)
Quarter: 2019Q1

REPORT INFORMATION
  Report Type: Spontaneous
  Country: FR (occurrence: FR)
  Receive Date: 20190226
  Receipt Date: 20190226
  Transmission Date: 20190418
  Serious: Yes (Hospitalization)
  Sender: FDA-Public Use
  Company Number: FR-ACCORD-108941

PATIENT
  Age: 68 Year
  Sex: Female

DRUGS (5)
  1. FLUOROURACIL. [Suspect]
     Active Substance: FLUOROURACIL
     Indication: BENIGN PANCREATIC NEOPLASM
     Dosage: 692MG + 4152MG,?RECEIVED TILL 26-JUL-2018
     Route: 042
     Dates: start: 20180724
  2. OXALIPLATIN MEDAC [Suspect]
     Active Substance: OXALIPLATIN
     Indication: BENIGN PANCREATIC NEOPLASM
     Route: 042
     Dates: start: 20180724, end: 20180724
  3. INNOHEP [Concomitant]
     Active Substance: TINZAPARIN SODIUM
  4. IRINOTECAN HOSPIRA [Suspect]
     Active Substance: IRINOTECAN
     Indication: BENIGN PANCREATIC NEOPLASM
     Route: 042
     Dates: start: 20180724, end: 20180724
  5. TRIMEBUTINE [Concomitant]
     Active Substance: TRIMEBUTINE

REACTIONS (3)
  - Diarrhoea [Recovered/Resolved]
  - Abdominal pain [Recovered/Resolved]
  - Off label use [Unknown]

NARRATIVE: CASE EVENT DATE: 20180724
